FAERS Safety Report 21007195 (Version 1)
Quarter: 2022Q2

REPORT INFORMATION
  Report Type: Report from Study
  Country: GB (occurrence: GB)
  Receive Date: 20220625
  Receipt Date: 20220625
  Transmission Date: 20220721
  Serious: Yes (Death, Life-Threatening, Hospitalization, Other)
  Sender: FDA-Public Use
  Company Number: GB-BRISTOL-MYERS SQUIBB COMPANY-2022-048878

PATIENT
  Age: 70 Year
  Sex: Male
  Weight: 67 kg

DRUGS (2)
  1. LENALIDOMIDE [Suspect]
     Active Substance: LENALIDOMIDE
     Indication: Follicular lymphoma
     Dosage: 2.5 MG DAILY
     Route: 048
     Dates: start: 20210531, end: 20210615
  2. RITUXIMAB [Suspect]
     Active Substance: RITUXIMAB
     Indication: Follicular lymphoma
     Route: 042
     Dates: start: 20210503, end: 20210503

REACTIONS (3)
  - Hip fracture [Not Recovered/Not Resolved]
  - Pulseless electrical activity [Fatal]
  - Brain injury [Unknown]

NARRATIVE: CASE EVENT DATE: 20210601
